FAERS Safety Report 9802183 (Version 5)
Quarter: 2015Q1

REPORT INFORMATION
  Report Type: Report from Study
  Country: SE (occurrence: SE)
  Receive Date: 20140107
  Receipt Date: 20150319
  Transmission Date: 20150721
  Serious: Yes (Hospitalization, Other)
  Sender: FDA-Public Use
  Company Number: SE-BRISTOL-MYERS SQUIBB COMPANY-15510100

PATIENT
  Age: 48 Year
  Sex: Male

DRUGS (2)
  1. IPILIMUMAB [Suspect]
     Active Substance: IPILIMUMAB
     Indication: MALIGNANT MELANOMA
     Dosage: INTERRUPTED ON 5JAN11,NO OF COURSE:4,790MG,750MG
     Route: 042
     Dates: start: 20101216, end: 20110216
  2. SERTRALINE [Concomitant]
     Active Substance: SERTRALINE HYDROCHLORIDE
     Indication: PRODUCT USED FOR UNKNOWN INDICATION
     Dosage: UNK
     Route: 065
     Dates: start: 2008

REACTIONS (6)
  - Gastrointestinal haemorrhage [Recovered/Resolved with Sequelae]
  - Endocarditis [Recovered/Resolved]
  - Colitis [Recovered/Resolved with Sequelae]
  - Anal fissure [Recovered/Resolved]
  - Sepsis [Recovered/Resolved]
  - Post procedural complication [Unknown]

NARRATIVE: CASE EVENT DATE: 20110123
